FAERS Safety Report 7546495-6 (Version None)
Quarter: 2011Q2

REPORT INFORMATION
  Report Type: 
  Country: None (occurrence: None)
  Receive Date: 20110524
  Receipt Date: 20110221
  Transmission Date: 20111010
  Serious: No
  Sender: FDA-Public Use
  Company Number: 027945

PATIENT
  Sex: Male

DRUGS (1)
  1. CIMZIA [Suspect]
     Dosage: (400 MG 1X/2 WEEKS)
     Dates: start: 20110216

REACTIONS (2)
  - INJECTION SITE HAEMATOMA [None]
  - ALOPECIA [None]
